FAERS Safety Report 24379072 (Version 4)
Quarter: 2024Q4

REPORT INFORMATION
  Report Type: Report from Study
  Country: US (occurrence: US)
  Receive Date: 20240930
  Receipt Date: 20241219
  Transmission Date: 20250115
  Serious: No
  Sender: MERCK
  Company Number: US-009507513-2409USA008758

PATIENT
  Sex: Female
  Weight: 68.934 kg

DRUGS (28)
  1. SOTATERCEPT [Suspect]
     Active Substance: SOTATERCEPT
     Indication: Pulmonary arterial hypertension
     Dosage: 0.4 MILLILITER (PATIENT WEIGHT 72.1 KG), Q3W; STRENGTH: 45 MG KIT
     Route: 058
     Dates: start: 20240716, end: 2024
  2. SOTATERCEPT [Suspect]
     Active Substance: SOTATERCEPT
     Dosage: 0.4 MILLILITER (PATIENT WEIGHT 72.1 KG), Q3W; STRENGTH: 45 MG KIT
     Route: 058
     Dates: start: 2024, end: 202410
  3. SOTATERCEPT [Suspect]
     Active Substance: SOTATERCEPT
     Dosage: 0.4 MILLILITER (PATIENT WEIGHT 72.1 KG), Q3W; STRENGTH: 45 MG KIT
     Route: 058
     Dates: start: 202410
  4. WINREVAIR [Suspect]
     Active Substance: SOTATERCEPT-CSRK
     Indication: Pulmonary arterial hypertension
     Dosage: 0.4 MILLILITER (PATIENT WEIGHT 72.1 KG), Q3W; STRENGTH: 45 MG KIT
     Route: 058
     Dates: start: 20240716, end: 2024
  5. WINREVAIR [Suspect]
     Active Substance: SOTATERCEPT-CSRK
     Dosage: 0.4 MILLILITER (PATIENT WEIGHT 72.1 KG), Q3W; STRENGTH: 45 MG KIT
     Route: 058
     Dates: start: 2024, end: 202410
  6. WINREVAIR [Suspect]
     Active Substance: SOTATERCEPT-CSRK
     Dosage: 0.4 MILLILITER (PATIENT WEIGHT 72.1 KG), Q3W; STRENGTH: 45 MG KIT
     Route: 058
     Dates: start: 202410
  7. ORENITRAM [Suspect]
     Active Substance: TREPROSTINIL
     Indication: Pulmonary arterial hypertension
     Dosage: 0.375 MILLIGRAM, BID
     Route: 048
     Dates: start: 2023, end: 2023
  8. ORENITRAM [Suspect]
     Active Substance: TREPROSTINIL
     Dosage: 0.125 MILLIGRAM, BID
     Route: 048
     Dates: start: 2023, end: 2023
  9. ORENITRAM [Suspect]
     Active Substance: TREPROSTINIL
     Dosage: 1.375 MILLIGRAM, BID
     Route: 048
     Dates: start: 2023
  10. ORENITRAM [Suspect]
     Active Substance: TREPROSTINIL
     Dosage: 0.25 MILLIGRAM
     Route: 048
     Dates: start: 20240109, end: 2024
  11. ORENITRAM [Suspect]
     Active Substance: TREPROSTINIL
     Dosage: 2.25 MILLIGRAM, TID
     Route: 048
     Dates: start: 2024, end: 2024
  12. ORENITRAM [Suspect]
     Active Substance: TREPROSTINIL
     Dosage: 1 MILLIGRAM, TID
     Route: 048
     Dates: start: 2024, end: 2024
  13. MELATONIN [Concomitant]
     Active Substance: MELATONIN
  14. HAIR SKIN NAILS [Concomitant]
  15. OPSUMIT [Concomitant]
     Active Substance: MACITENTAN
  16. OXYGEN [Concomitant]
     Active Substance: OXYGEN
  17. IBUPROFEN [Concomitant]
     Active Substance: IBUPROFEN
  18. SPIRONOLACTONE [Concomitant]
     Active Substance: SPIRONOLACTONE
  19. TRAZODONE HYDROCHLORIDE [Concomitant]
     Active Substance: TRAZODONE HYDROCHLORIDE
  20. FUROSEMIDE [Concomitant]
     Active Substance: FUROSEMIDE
  21. ACETAMINOPHEN [Concomitant]
     Active Substance: ACETAMINOPHEN
  22. ZYRTEC DAIICHI [Concomitant]
  23. MUPIROCIN [Concomitant]
     Active Substance: MUPIROCIN
  24. DOXYCYCLINE [Concomitant]
     Active Substance: DOXYCYCLINE
  25. GABAPENTIN [Concomitant]
     Active Substance: GABAPENTIN
  26. MOTRIN IB [Concomitant]
     Active Substance: IBUPROFEN
  27. UPTRAVI [Concomitant]
     Active Substance: SELEXIPAG
     Dosage: 200 MILLIGRAM, BID
     Dates: start: 202411
  28. VITAMINS [Concomitant]
     Active Substance: VITAMINS

REACTIONS (19)
  - Adverse drug reaction [Unknown]
  - Brain fog [Recovering/Resolving]
  - Memory impairment [Unknown]
  - Haemoglobin decreased [Recovered/Resolved]
  - Chest pain [Unknown]
  - Throat irritation [Unknown]
  - Cough [Unknown]
  - Pain in jaw [Not Recovered/Not Resolved]
  - Weight decreased [Unknown]
  - Dyspnoea [Unknown]
  - Lethargy [Unknown]
  - Rhinorrhoea [Unknown]
  - Eye irritation [Unknown]
  - Haemoptysis [Unknown]
  - Gingival bleeding [Unknown]
  - Epistaxis [Recovered/Resolved]
  - Abdominal pain [Not Recovered/Not Resolved]
  - Haemoglobin increased [Recovered/Resolved]
  - Diarrhoea [Unknown]

NARRATIVE: CASE EVENT DATE: 20240101
